FAERS Safety Report 18967237 (Version 2)
Quarter: 2021Q1

REPORT INFORMATION
  Report Type: Spontaneous
  Country: IT (occurrence: IT)
  Receive Date: 20210303
  Receipt Date: 20210315
  Transmission Date: 20210420
  Serious: Yes (Life-Threatening, Hospitalization, Other)
  Sender: FDA-Public Use
  Company Number: IT-AUROBINDO-AUR-APL-2021-006192

PATIENT
  Age: 41 Year
  Sex: Female
  Weight: 60.5 kg

DRUGS (2)
  1. FUROSEMIDE. [Suspect]
     Active Substance: FUROSEMIDE
     Indication: PRODUCT USED FOR UNKNOWN INDICATION
     Dosage: UNK
     Route: 065
  2. GEMCITABINE. [Suspect]
     Active Substance: GEMCITABINE
     Indication: OVARIAN CANCER STAGE III
     Dosage: 1000 MILLIGRAM/SQ. METER,4CYCLICAL (ON DAYS 1,8,15 IN A 28?DAY CYCLE )
     Route: 065
     Dates: start: 201909, end: 202001

REACTIONS (7)
  - Mitral valve incompetence [Recovering/Resolving]
  - Bundle branch block right [Recovering/Resolving]
  - Cardiomyopathy [Recovering/Resolving]
  - Atrioventricular block first degree [Recovering/Resolving]
  - Cardiac failure congestive [Recovering/Resolving]
  - Cardiotoxicity [Recovering/Resolving]
  - Congestive cardiomyopathy [Recovered/Resolved]

NARRATIVE: CASE EVENT DATE: 202001
